FAERS Safety Report 18642927 (Version 1)
Quarter: 2020Q4

REPORT INFORMATION
  Report Type: Spontaneous
  Country: US (occurrence: US)
  Receive Date: 20201218
  Receipt Date: 20201218
  Transmission Date: 20210114
  Serious: Yes (Life-Threatening, Hospitalization)
  Sender: FDA-Public Use
  Company Number: None

PATIENT
  Age: 71 Year
  Sex: Male
  Weight: 107.8 kg

DRUGS (5)
  1. ASCORBIC ACID. [Concomitant]
     Active Substance: ASCORBIC ACID
  2. LIDOCAINE/PRILOCAINE [Concomitant]
     Active Substance: LIDOCAINE\PRILOCAINE
  3. OBINUTUZUMAB, 1000MG [Suspect]
     Active Substance: OBINUTUZUMAB
     Indication: CENTRAL NERVOUS SYSTEM LYMPHOMA
     Dosage: ?          OTHER FREQUENCY:EVERY2MOS;?
     Route: 042
     Dates: start: 20190312
  4. ALTEPLASE. [Concomitant]
     Active Substance: ALTEPLASE
  5. PREDNISOLONE ACET/GATIFLOXACIN [Concomitant]

REACTIONS (2)
  - SARS-CoV-2 test positive [None]
  - Respiratory distress [None]

NARRATIVE: CASE EVENT DATE: 20201204
